FAERS Safety Report 6767437-7 (Version None)
Quarter: 2010Q2

REPORT INFORMATION
  Report Type: 
  Country: None (occurrence: None)
  Receive Date: 20100614
  Receipt Date: 20100531
  Transmission Date: 20101027
  Serious: Yes (Hospitalization, Other)
  Sender: FDA-Public Use
  Company Number: PHHY2010AR17273

PATIENT
  Sex: Male

DRUGS (6)
  1. DIOVAN [Suspect]
     Indication: HYPERTENSION
     Dosage: 1 DF, DAILY
     Route: 048
     Dates: end: 20100314
  2. AMLODIPINE [Concomitant]
     Dosage: 10 MG, DAILY
  3. SINTROM [Concomitant]
     Dosage: UNK
  4. METFORMIN [Concomitant]
     Dosage: 850 MG, DAILY
  5. FUROSEMIDE [Concomitant]
     Dosage: UNK
  6. INSULIN [Concomitant]
     Dosage: UNK

REACTIONS (4)
  - ARRHYTHMIA [None]
  - CARDIAC DISORDER [None]
  - CARDIAC PACEMAKER INSERTION [None]
  - HEART RATE DECREASED [None]
